FAERS Safety Report 18155933 (Version 4)
Quarter: 2021Q1

REPORT INFORMATION
  Report Type: Spontaneous
  Country: US (occurrence: US)
  Receive Date: 20200817
  Receipt Date: 20210129
  Transmission Date: 20210419
  Serious: Yes (Hospitalization, Other)
  Sender: FDA-Public Use
  Company Number: NVSC2020US225575

PATIENT
  Age: 65 Year
  Sex: Female
  Weight: 67.1 kg

DRUGS (6)
  1. ENSURE [Concomitant]
     Active Substance: AMINO ACIDS\DEXTROSE\ELECTROLYTES NOS\SOYBEAN OIL\VITAMINS
     Indication: DIFFUSE LARGE B-CELL LYMPHOMA
     Dosage: 237 ML, QD 237 ML, QD (WITH BREAKFAST)
     Route: 048
  2. LEVAQUIN [Concomitant]
     Active Substance: LEVOFLOXACIN
     Indication: PNEUMONIA
     Dosage: 1 DF, Q24H (FOR 5 DAYS)
     Route: 048
  3. KYMRIAH [Suspect]
     Active Substance: TISAGENLECLEUCEL
     Indication: DIFFUSE LARGE B-CELL LYMPHOMA
     Dosage: 2.2 X10^8 CAR POSITIVE VIABLE
     Route: 042
     Dates: start: 20200715
  4. DRISDOL [Concomitant]
     Active Substance: ERGOCALCIFEROL
     Indication: PRODUCT USED FOR UNKNOWN INDICATION
     Dosage: 1 DF (ONCE A WEEK) (PATIENT TAKE ON WEDNESDAY) (STRENGTH: 50000 UNIT)
     Route: 048
  5. KEPPRA [Concomitant]
     Active Substance: LEVETIRACETAM
     Indication: SEIZURE PROPHYLAXIS
     Dosage: 1 DF, BID
     Route: 048
  6. ZOVIRAX [Concomitant]
     Active Substance: ACYCLOVIR
     Indication: PROPHYLAXIS
     Dosage: 1 DF, BID
     Route: 048

REACTIONS (17)
  - Dysgraphia [Unknown]
  - Pleural effusion [Unknown]
  - Confusional state [Unknown]
  - Encephalopathy [Recovered/Resolved]
  - Hypoglycaemia [Unknown]
  - Abdominal mass [Unknown]
  - Hypercalcaemia [Recovered/Resolved]
  - Aphasia [Unknown]
  - Atelectasis [Unknown]
  - Headache [Recovered/Resolved]
  - Immune effector cell-associated neurotoxicity syndrome [Recovered/Resolved]
  - Pulmonary oedema [Unknown]
  - Gait disturbance [Unknown]
  - Dyscalculia [Unknown]
  - Hyperglycaemia [Unknown]
  - Immune effector cell-associated neurotoxicity syndrome [Recovered/Resolved]
  - Memory impairment [Unknown]

NARRATIVE: CASE EVENT DATE: 20200811
